FAERS Safety Report 6540217-3 (Version None)
Quarter: 2010Q1

REPORT INFORMATION
  Report Type: 
  Country: None (occurrence: None)
  Receive Date: 20100111
  Receipt Date: 20091202
  Transmission Date: 20100710
  Serious: Yes (Other)
  Sender: FDA-Public Use
  Company Number: 8031815

PATIENT
  Age: 47 Year
  Sex: Female

DRUGS (4)
  1. PREDNISOLONE [Suspect]
     Indication: LUPUS PNEUMONITIS
     Dates: start: 19980101, end: 20050101
  2. PREDNISOLONE [Suspect]
     Indication: LUPUS PNEUMONITIS
     Dates: start: 20050101, end: 20070401
  3. AZATHIOPRINE [Suspect]
     Indication: LUPUS PNEUMONITIS
     Dosage: (150 MG, DAILY)
     Dates: start: 19980101, end: 20050101
  4. CYCLOSPORINE [Suspect]
     Indication: LUPUS PNEUMONITIS
     Dates: start: 19980101, end: 20050101

REACTIONS (2)
  - EPSTEIN-BARR VIRUS INFECTION [None]
  - HODGKIN'S DISEASE [None]
